FAERS Safety Report 12778954 (Version 1)
Quarter: 2016Q3

REPORT INFORMATION
  Report Type: Spontaneous
  Country: US (occurrence: US)
  Receive Date: 20160922
  Receipt Date: 20160922
  Transmission Date: 20161109
  Serious: Yes (Hospitalization)
  Sender: FDA-Public Use
  Company Number: None

PATIENT
  Age: 64 Year
  Sex: Female
  Weight: 57.4 kg

DRUGS (1)
  1. TAXOTERE [Suspect]
     Active Substance: DOCETAXEL
     Dates: end: 20151026

REACTIONS (9)
  - Mucosal inflammation [None]
  - Cardiac failure [None]
  - Constipation [None]
  - Hypoxia [None]
  - Rales [None]
  - Radiation skin injury [None]
  - Tachycardia [None]
  - Dyspnoea [None]
  - Chronic obstructive pulmonary disease [None]

NARRATIVE: CASE EVENT DATE: 20151116
